FAERS Safety Report 22528868 (Version 1)
Quarter: 2023Q2

REPORT INFORMATION
  Report Type: Spontaneous
  Country: PR (occurrence: PR)
  Receive Date: 20230607
  Receipt Date: 20230607
  Transmission Date: 20230722
  Serious: Yes (Hospitalization, Other)
  Sender: FDA-Public Use
  Company Number: PR-BRISTOL-MYERS SQUIBB COMPANY-2023-078941

PATIENT
  Age: 82 Year
  Sex: Female
  Weight: 44.0 kg

DRUGS (1)
  1. REVLIMID [Suspect]
     Active Substance: LENALIDOMIDE
     Indication: Diffuse large B-cell lymphoma
     Dosage: TAKE ONE CAPSULE DAILY FOR 21 DAY
     Route: 048
     Dates: start: 20210108

REACTIONS (3)
  - Gastrointestinal disorder [Recovered/Resolved]
  - Aneurysm [Recovered/Resolved]
  - Off label use [Unknown]

NARRATIVE: CASE EVENT DATE: 20221201
